FAERS Safety Report 6727775-0 (Version None)
Quarter: 2010Q2

REPORT INFORMATION
  Report Type: 
  Country: None (occurrence: None)
  Receive Date: 20100514
  Receipt Date: 20100514
  Transmission Date: 20101027
  Serious: Yes (Other)
  Sender: FDA-Public Use
  Company Number: None

PATIENT
  Sex: Female
  Weight: 51.2565 kg

DRUGS (2)
  1. NECON 1/35 - GENERIC [Suspect]
     Indication: CONTRACEPTION
     Dosage: ONE A DAY - ORAL
     Route: 048
     Dates: start: 20031201, end: 20040201
  2. ORTHO TRI-CYCLEN [Suspect]
     Indication: CONTRACEPTION
     Dosage: ONE A DAY - ORAL
     Route: 048
     Dates: start: 20040201, end: 20050601

REACTIONS (4)
  - DRUG EXPOSURE DURING PREGNANCY [None]
  - HAEMORRHAGE [None]
  - PREGNANCY [None]
  - PRODUCT SUBSTITUTION ISSUE [None]
